FAERS Safety Report 10194361 (Version 1)
Quarter: 2014Q2

REPORT INFORMATION
  Report Type: Report from Study
  Country: US (occurrence: US)
  Receive Date: 20140526
  Receipt Date: 20140526
  Transmission Date: 20141212
  Serious: Yes (Hospitalization)
  Sender: FDA-Public Use
  Company Number: US-BIOGENIDEC-2014BI047432

PATIENT
  Age: 40 Year
  Sex: Female

DRUGS (12)
  1. TECFIDERA [Suspect]
     Indication: MULTIPLE SCLEROSIS
     Route: 048
     Dates: start: 20140120, end: 20140203
  2. TECFIDERA [Suspect]
     Indication: MULTIPLE SCLEROSIS
     Route: 048
     Dates: start: 20140204
  3. TECFIDERA [Suspect]
     Indication: MULTIPLE SCLEROSIS
     Route: 048
  4. AMBIEN [Concomitant]
  5. CLONAZEPAM [Concomitant]
  6. DAYTRANA [Concomitant]
  7. EFFEXOR [Concomitant]
  8. HYDROXYZINE [Concomitant]
  9. LEXAPRO [Concomitant]
  10. KEFLEX [Concomitant]
  11. STEROID INHALER [Concomitant]
     Indication: ASTHMA
  12. Z-PAK [Concomitant]

REACTIONS (4)
  - Ectopic pregnancy [Recovered/Resolved]
  - Prescribed underdose [Recovered/Resolved]
  - Multiple sclerosis relapse [Recovered/Resolved]
  - Nausea [Not Recovered/Not Resolved]
